FAERS Safety Report 24138898 (Version 3)
Quarter: 2024Q4

REPORT INFORMATION
  Report Type: Spontaneous
  Country: JP (occurrence: JP)
  Receive Date: 20240726
  Receipt Date: 20241101
  Transmission Date: 20250115
  Serious: Yes (Hospitalization, Other)
  Sender: TAKEDA
  Company Number: JP-TAKEDA-2024TJP011024

PATIENT
  Age: 8 Decade

DRUGS (1)
  1. NINLARO [Suspect]
     Active Substance: IXAZOMIB CITRATE
     Indication: Plasma cell myeloma
     Dosage: 2.3 MILLIGRAM, 1/WEEK
     Route: 048
     Dates: start: 20240705

REACTIONS (3)
  - Respiratory tract oedema [Recovered/Resolved]
  - Face oedema [Recovering/Resolving]
  - Rash [Not Recovered/Not Resolved]

NARRATIVE: CASE EVENT DATE: 20240722
